FAERS Safety Report 9723614 (Version 1)
Quarter: 2013Q4

REPORT INFORMATION
  Report Type: Spontaneous
  Country: AU (occurrence: AU)
  Receive Date: 20131202
  Receipt Date: 20131202
  Transmission Date: 20140711
  Serious: Yes (Other)
  Sender: FDA-Public Use
  Company Number: PHHY2013AU139475

PATIENT
  Age: 64 Year
  Sex: Female

DRUGS (1)
  1. CARBAMAZEPINE [Suspect]
     Dosage: UNK UKN, UNK

REACTIONS (6)
  - Vertigo [Unknown]
  - Lethargy [Unknown]
  - Dizziness [Unknown]
  - Fatigue [Unknown]
  - Liver function test abnormal [Unknown]
  - Thrombocytopenia [Unknown]
